FAERS Safety Report 7327116-4 (Version None)
Quarter: 2011Q1

REPORT INFORMATION
  Report Type: 
  Country: None (occurrence: None)
  Receive Date: 20110302
  Receipt Date: 20110302
  Transmission Date: 20110831
  Serious: Yes (Hospitalization, Other)
  Sender: FDA-Public Use
  Company Number: PHEH2006US15272

PATIENT
  Sex: Male

DRUGS (7)
  1. NEURONTIN [Concomitant]
  2. ZOMETA [Suspect]
     Indication: MULTIPLE MYELOMA
  3. AMBIEN [Concomitant]
  4. TRAZODONE HCL [Concomitant]
  5. DIOVAN [Concomitant]
     Indication: HYPERTENSION
  6. AREDIA [Suspect]
  7. AMITRIPTYLINE [Concomitant]

REACTIONS (34)
  - OEDEMA PERIPHERAL [None]
  - TOOTH INFECTION [None]
  - MENISCUS LESION [None]
  - PRIMARY SEQUESTRUM [None]
  - SUBCUTANEOUS ABSCESS [None]
  - INTERVERTEBRAL DISC DEGENERATION [None]
  - TENDONITIS [None]
  - SWELLING [None]
  - JOINT RANGE OF MOTION DECREASED [None]
  - ARTHRALGIA [None]
  - FASCIITIS [None]
  - ANAEMIA [None]
  - OROPHARYNGEAL PAIN [None]
  - SCOLIOSIS [None]
  - OSTEONECROSIS OF JAW [None]
  - DECREASED INTEREST [None]
  - JOINT SWELLING [None]
  - POST CONCUSSION SYNDROME [None]
  - NEURITIS [None]
  - BURSITIS [None]
  - POST THROMBOTIC SYNDROME [None]
  - HYPONATRAEMIA [None]
  - BLOOD ALKALINE PHOSPHATASE INCREASED [None]
  - CELLULITIS [None]
  - ANXIETY [None]
  - OSTEOARTHRITIS [None]
  - HYPERTENSION [None]
  - DEEP VEIN THROMBOSIS [None]
  - TENDERNESS [None]
  - PAIN [None]
  - VIITH NERVE PARALYSIS [None]
  - GENERAL PHYSICAL HEALTH DETERIORATION [None]
  - GAIT DISTURBANCE [None]
  - SINUS TARSI SYNDROME [None]
